FAERS Safety Report 10333823 (Version 3)
Quarter: 2015Q2

REPORT INFORMATION
  Report Type: Report from Study
  Country: US (occurrence: US)
  Receive Date: 20140723
  Receipt Date: 20150514
  Transmission Date: 20150821
  Serious: Yes (Hospitalization)
  Sender: FDA-Public Use
  Company Number: US-BIOGENIDEC-2014BI072025

PATIENT
  Age: 44 Year
  Sex: Female

DRUGS (10)
  1. LYRICA [Concomitant]
     Active Substance: PREGABALIN
  2. KEFLEX [Concomitant]
     Active Substance: CEPHALEXIN
  3. NOREO [Concomitant]
  4. FOLIC ACID. [Concomitant]
     Active Substance: FOLIC ACID
  5. LAMICTAL [Concomitant]
     Active Substance: LAMOTRIGINE
  6. AVONEX [Suspect]
     Active Substance: INTERFERON BETA-1A
     Indication: MULTIPLE SCLEROSIS
     Route: 030
     Dates: start: 20130814, end: 20150310
  7. VITAMIN D [Concomitant]
     Active Substance: CHOLECALCIFEROL
  8. KLONOPIN [Concomitant]
     Active Substance: CLONAZEPAM
  9. BACLOFEN. [Concomitant]
     Active Substance: BACLOFEN
  10. NEURONTIN [Concomitant]
     Active Substance: GABAPENTIN

REACTIONS (10)
  - Feeling abnormal [Unknown]
  - Pulmonary oedema [Unknown]
  - Fear [Unknown]
  - Memory impairment [Recovered/Resolved]
  - Depression [Recovered/Resolved]
  - Multiple sclerosis relapse [Recovered/Resolved]
  - Frustration [Recovered/Resolved]
  - Drug intolerance [Unknown]
  - Seizure [Unknown]
  - Swelling [Unknown]

NARRATIVE: CASE EVENT DATE: 2013
